FAERS Safety Report 4388808-2 (Version None)
Quarter: 2004Q2

REPORT INFORMATION
  Report Type: 
  Country: None (occurrence: None)
  Receive Date: 20040624
  Receipt Date: 20040621
  Transmission Date: 20050107
  Serious: Yes (Life-Threatening, Hospitalization, Other)
  Sender: FDA-Public Use
  Company Number: 200410095BVD

PATIENT
  Age: 68 Year
  Sex: Male
  Weight: 78 kg

DRUGS (23)
  1. AVELOX [Suspect]
     Indication: BRONCHITIS
     Dosage: SEE IMAGE
     Route: 048
     Dates: start: 20011201
  2. AVELOX [Suspect]
     Indication: CHRONIC OBSTRUCTIVE AIRWAYS DISEASE
     Dosage: SEE IMAGE
     Route: 048
     Dates: start: 20011201
  3. AVELOX [Suspect]
     Indication: PYREXIA
     Dosage: SEE IMAGE
     Route: 048
     Dates: start: 20011201
  4. AVELOX [Suspect]
     Indication: BRONCHITIS
     Dosage: SEE IMAGE
     Route: 048
     Dates: start: 20030301
  5. AVELOX [Suspect]
     Indication: CHRONIC OBSTRUCTIVE AIRWAYS DISEASE
     Dosage: SEE IMAGE
     Route: 048
     Dates: start: 20030301
  6. AVELOX [Suspect]
     Indication: PYREXIA
     Dosage: SEE IMAGE
     Route: 048
     Dates: start: 20030301
  7. AVELOX [Suspect]
     Indication: BRONCHITIS
     Dosage: SEE IMAGE
     Route: 048
     Dates: start: 20030501
  8. AVELOX [Suspect]
     Indication: CHRONIC OBSTRUCTIVE AIRWAYS DISEASE
     Dosage: SEE IMAGE
     Route: 048
     Dates: start: 20030501
  9. AVELOX [Suspect]
     Indication: PYREXIA
     Dosage: SEE IMAGE
     Route: 048
     Dates: start: 20030501
  10. AVELOX [Suspect]
     Indication: BRONCHITIS
     Dosage: SEE IMAGE
     Route: 048
     Dates: start: 20040127
  11. AVELOX [Suspect]
     Indication: CHRONIC OBSTRUCTIVE AIRWAYS DISEASE
     Dosage: SEE IMAGE
     Route: 048
     Dates: start: 20040127
  12. AVELOX [Suspect]
     Indication: PYREXIA
     Dosage: SEE IMAGE
     Route: 048
     Dates: start: 20040127
  13. AZIMILID OR PLACEBO (UNCODEABLE ^INVESTIGATIONAL DRUG^) [Suspect]
     Indication: VENTRICULAR ARRHYTHMIA
     Dosage: SEE IMAGE
  14. AZIMILID (ANTIARRHYTHMICS, CLASS I AND III) [Suspect]
     Indication: VENTRICULAR ARRHYTHMIA
     Dosage: 125 MG, TOTAL DAILY
     Dates: start: 20030611, end: 20030630
  15. SORTIS [Concomitant]
  16. ACERCOMP [Concomitant]
  17. TORSEMIDE [Concomitant]
  18. DILATREND [Concomitant]
  19. MARCUMAR [Concomitant]
  20. DELIX [Concomitant]
  21. TRIAMTEREN [Concomitant]
  22. ALLOPURINOL [Concomitant]
  23. MAGNETRANS [Concomitant]

REACTIONS (6)
  - CHRONIC OBSTRUCTIVE AIRWAYS DISEASE EXACERBATED [None]
  - ELECTROCARDIOGRAM QT PROLONGED [None]
  - INFECTION [None]
  - PYREXIA [None]
  - TORSADE DE POINTES [None]
  - VENTRICULAR FIBRILLATION [None]
